FAERS Safety Report 11993305 (Version 2)
Quarter: 2016Q1

REPORT INFORMATION
  Report Type: Report from Study
  Country: MX (occurrence: MX)
  Receive Date: 20160203
  Receipt Date: 20160205
  Transmission Date: 20160526
  Serious: Yes (Hospitalization)
  Sender: FDA-Public Use
  Company Number: PHHY2015MX096907

PATIENT
  Age: 91 Year
  Sex: Female

DRUGS (7)
  1. DILACORAN [Concomitant]
     Active Substance: VERAPAMIL HYDROCHLORIDE
     Indication: CARDIAC DISORDER
     Route: 065
  2. OMEPRAZOLE. [Concomitant]
     Active Substance: OMEPRAZOLE
     Indication: PRODUCT USED FOR UNKNOWN INDICATION
     Route: 065
  3. SPIRIVA [Concomitant]
     Active Substance: TIOTROPIUM BROMIDE MONOHYDRATE
     Indication: PRODUCT USED FOR UNKNOWN INDICATION
     Route: 065
  4. ASPIRIN PROTECT [Concomitant]
     Active Substance: ASPIRIN
     Indication: BLOOD DISORDER
     Route: 065
  5. ONBREZ BREEZHALER [Suspect]
     Active Substance: INDACATEROL
     Dosage: UNK
     Route: 065
     Dates: start: 201507
  6. DIOSMINE [Concomitant]
     Active Substance: HESPERIDIN
     Indication: VEIN DISORDER
     Route: 065
  7. ONBREZ BREEZHALER [Suspect]
     Active Substance: INDACATEROL
     Indication: CHRONIC OBSTRUCTIVE PULMONARY DISEASE
     Dosage: 150 UG, QHS
     Route: 065
     Dates: start: 201309, end: 201507

REACTIONS (8)
  - Decreased appetite [Unknown]
  - Mastication disorder [Unknown]
  - Bronchitis [Unknown]
  - General physical condition abnormal [Unknown]
  - Pneumothorax [Recovered/Resolved]
  - Dyspnoea [Recovered/Resolved]
  - Diarrhoea [Unknown]
  - Suffocation feeling [Unknown]

NARRATIVE: CASE EVENT DATE: 201509
